FAERS Safety Report 20656312 (Version 2)
Quarter: 2024Q3

REPORT INFORMATION
  Report Type: Report from Study
  Country: IN (occurrence: IN)
  Receive Date: 20220331
  Receipt Date: 20240925
  Transmission Date: 20241016
  Serious: Yes (Death, Other)
  Sender: NOVARTIS
  Company Number: IN-NOVARTISPH-NVSC2021IN301789

PATIENT
  Age: 20 Year
  Sex: Male

DRUGS (3)
  1. ELTROMBOPAG OLAMINE [Suspect]
     Active Substance: ELTROMBOPAG OLAMINE
     Indication: Rheumatoid arthritis
     Dosage: 50 MG, QD
     Route: 065
     Dates: start: 20211216, end: 20211218
  2. ELTROMBOPAG OLAMINE [Suspect]
     Active Substance: ELTROMBOPAG OLAMINE
     Dosage: 50 MG, BID
     Route: 065
     Dates: start: 20211218, end: 202112
  3. ELTROMBOPAG OLAMINE [Suspect]
     Active Substance: ELTROMBOPAG OLAMINE
     Dosage: 100 MG, QD
     Route: 065
     Dates: start: 20220111

REACTIONS (7)
  - Renal disorder [Fatal]
  - Asthenia [Not Recovered/Not Resolved]
  - Eating disorder [Unknown]
  - Liver function test abnormal [Unknown]
  - Product use issue [Recovered/Resolved]
  - Product use issue [Not Recovered/Not Resolved]
  - Product use in unapproved indication [Unknown]

NARRATIVE: CASE EVENT DATE: 20211201
